FAERS Safety Report 8392758-4 (Version None)
Quarter: 2012Q2

REPORT INFORMATION
  Report Type: 
  Country: None (occurrence: None)
  Receive Date: 20120529
  Receipt Date: 20111114
  Transmission Date: 20120825
  Serious: No
  Sender: FDA-Public Use
  Company Number: US-MYLANLABS-2011S1020736

PATIENT
  Age: 50 Year
  Sex: Male

DRUGS (5)
  1. AMITRIPTYLINE HCL [Suspect]
     Route: 048
     Dates: start: 20110930, end: 20110930
  2. BENADRYL [Concomitant]
  3. AMITRIPTYLINE HCL [Suspect]
     Indication: TENSION HEADACHE
     Route: 048
     Dates: start: 20110308, end: 20110310
  4. AMITRIPTYLINE HCL [Suspect]
     Route: 048
     Dates: start: 20110310, end: 20110923
  5. AMITRIPTYLINE HCL [Suspect]
     Route: 048
     Dates: start: 20111004

REACTIONS (4)
  - RASH PRURITIC [None]
  - URTICARIA [None]
  - DRUG WITHDRAWAL SYNDROME [None]
  - LIP SWELLING [None]
